FAERS Safety Report 10763351 (Version 2)
Quarter: 2015Q1

REPORT INFORMATION
  Report Type: Spontaneous
  Country: US (occurrence: US)
  Receive Date: 20150204
  Receipt Date: 20150204
  Transmission Date: 20150721
  Serious: Yes (Hospitalization, Other)
  Sender: FDA-Public Use
  Company Number: US-GLAXOSMITHKLINE-US2015012000

PATIENT
  Age: 88 Year
  Sex: Male

DRUGS (8)
  1. HUMULIN 70/30 [Concomitant]
     Active Substance: INSULIN HUMAN
  2. NEXIUM [Concomitant]
     Active Substance: ESOMEPRAZOLE MAGNESIUM
  3. ADVAIR DISKUS [Suspect]
     Active Substance: FLUTICASONE PROPIONATE\SALMETEROL XINAFOATE
     Indication: DYSPNOEA
     Dosage: 250/50
     Route: 055
  4. COREG [Suspect]
     Active Substance: CARVEDILOL
     Indication: CARDIAC FAILURE CONGESTIVE
     Dosage: 25 MG, BID
     Route: 048
  5. XALATAN [Concomitant]
     Active Substance: LATANOPROST
  6. IMDUR [Concomitant]
     Active Substance: ISOSORBIDE MONONITRATE
  7. TIMOLOL [Concomitant]
     Active Substance: TIMOLOL
  8. COZAAR [Concomitant]
     Active Substance: LOSARTAN POTASSIUM

REACTIONS (5)
  - Abnormal behaviour [Recovered/Resolved]
  - Blood sodium decreased [Recovered/Resolved]
  - Memory impairment [Recovered/Resolved]
  - Treatment noncompliance [Unknown]
  - Pneumonia [Recovering/Resolving]

NARRATIVE: CASE EVENT DATE: 201407
